FAERS Safety Report 6983519-9 (Version None)
Quarter: 2010Q3

REPORT INFORMATION
  Report Type: 
  Country: None (occurrence: None)
  Receive Date: 20100914
  Receipt Date: 20080723
  Transmission Date: 20110219
  Serious: No
  Sender: FDA-Public Use
  Company Number: US-WYE-H05229008

PATIENT
  Age: 34 Year
  Sex: Female
  Weight: 61.74 kg

DRUGS (2)
  1. ADVIL LIQUI-GELS [Suspect]
     Indication: ARTHRALGIA
     Dosage: 1 LIQUI-GEL DAILY
     Route: 048
     Dates: start: 20080719, end: 20080701
  2. TYLENOL [Concomitant]

REACTIONS (2)
  - DYSPHAGIA [None]
  - VOMITING [None]
